FAERS Safety Report 5637547-6 (Version None)
Quarter: 2008Q1

REPORT INFORMATION
  Report Type: 
  Country: None (occurrence: None)
  Receive Date: 20080219
  Receipt Date: 20080206
  Transmission Date: 20080703
  Serious: Yes (Other)
  Sender: FDA-Public Use
  Company Number: 2008S1002001

PATIENT
  Age: 44 Year
  Sex: Male
  Weight: 81.6475 kg

DRUGS (2)
  1. ATENOLOL [Suspect]
     Indication: MITRAL VALVE PROLAPSE
     Dosage: 25 MG; DAILY; ORAL
     Route: 048
     Dates: start: 20071127, end: 20071128
  2. XANAX [Concomitant]

REACTIONS (2)
  - HOMICIDAL IDEATION [None]
  - SUICIDAL IDEATION [None]
